FAERS Safety Report 22761304 (Version 3)
Quarter: 2024Q3

REPORT INFORMATION
  Report Type: Spontaneous
  Country: US (occurrence: US)
  Receive Date: 20230728
  Receipt Date: 20240828
  Transmission Date: 20241017
  Serious: No
  Sender: PHARMING GROUP
  Company Number: US-PHARMING-PHAUS2023000535

PATIENT

DRUGS (2)
  1. RUCONEST [Suspect]
     Active Substance: CONESTAT ALFA
     Indication: Hereditary angioedema
     Dosage: 4000 IU, AS NEEDED
     Route: 042
     Dates: start: 201712
  2. RUCONEST [Suspect]
     Active Substance: CONESTAT ALFA
     Dosage: 4000 IU, AS NEEDED
     Route: 042
     Dates: start: 201712

REACTIONS (3)
  - Weight fluctuation [Unknown]
  - Condition aggravated [Unknown]
  - Sensitivity to weather change [Unknown]
